FAERS Safety Report 8125537-3 (Version None)
Quarter: 2012Q1

REPORT INFORMATION
  Report Type: 
  Country: None (occurrence: None)
  Receive Date: 20120209
  Receipt Date: 20120203
  Transmission Date: 20120608
  Serious: Yes (Death)
  Sender: FDA-Public Use
  Company Number: KR-PFIZER INC-2012031249

PATIENT

DRUGS (1)
  1. TYGACIL [Suspect]

REACTIONS (1)
  - HEPATOTOXICITY [None]
